FAERS Safety Report 17142446 (Version 2)
Quarter: 2019Q4

REPORT INFORMATION
  Report Type: Report from Study
  Country: US (occurrence: US)
  Receive Date: 20191211
  Receipt Date: 20191227
  Transmission Date: 20200122
  Serious: Yes (Hospitalization)
  Sender: FDA-Public Use
  Company Number: US-EISAI MEDICAL RESEARCH-EC-2019-066447

PATIENT
  Age: 76 Year
  Sex: Female
  Weight: 53 kg

DRUGS (8)
  1. IRBESARTAN. [Concomitant]
     Active Substance: IRBESARTAN
  2. LENVIMA [Suspect]
     Active Substance: LENVATINIB
     Indication: ENDOMETRIAL CANCER
     Route: 048
     Dates: start: 20191121, end: 201912
  3. VITAMIN D2 [Concomitant]
     Active Substance: ERGOCALCIFEROL
  4. LOSARTAN POTASSIUM. [Concomitant]
     Active Substance: LOSARTAN POTASSIUM
  5. KEYTRUDA [Concomitant]
     Active Substance: PEMBROLIZUMAB
  6. LAXATIVE [Concomitant]
     Active Substance: UNSPECIFIED INGREDIENT
  7. POTASSIUM CHLORIDE. [Concomitant]
     Active Substance: POTASSIUM CHLORIDE
  8. XARELTO [Concomitant]
     Active Substance: RIVAROXABAN

REACTIONS (13)
  - Oral pain [Unknown]
  - Vomiting [Unknown]
  - Constipation [Unknown]
  - Dehydration [Unknown]
  - Headache [Unknown]
  - Haemorrhage [Unknown]
  - Sleep disorder [Unknown]
  - Retching [Unknown]
  - Blood pressure systolic [Recovered/Resolved]
  - Anaemia [Unknown]
  - Fatigue [Unknown]
  - Ulcer haemorrhage [Unknown]
  - Nausea [Unknown]

NARRATIVE: CASE EVENT DATE: 2019
